FAERS Safety Report 5680890-5 (Version None)
Quarter: 2008Q1

REPORT INFORMATION
  Report Type: 
  Country: None (occurrence: None)
  Receive Date: 20080326
  Receipt Date: 20080314
  Transmission Date: 20080703
  Serious: Yes (Hospitalization)
  Sender: FDA-Public Use
  Company Number: GB-PFIZER INC-2007079997

PATIENT
  Age: 56 Year
  Sex: Female

DRUGS (17)
  1. PREGABALIN [Suspect]
     Indication: NEURALGIA
     Route: 048
     Dates: start: 20070101, end: 20070801
  2. ANASTROZOLE [Concomitant]
     Route: 048
  3. CITALOPRAM [Concomitant]
     Indication: DEPRESSION
     Route: 048
     Dates: start: 20070201, end: 20070801
  4. CODEINE SUL TAB [Concomitant]
     Indication: PAIN
     Route: 048
  5. ALL OTHER THERAPEUTIC PRODUCTS [Concomitant]
  6. FENTANYL [Concomitant]
     Indication: PAIN
     Route: 048
  7. FENTANYL [Concomitant]
     Route: 061
  8. LANSOPRAZOLE [Concomitant]
     Route: 048
  9. MAGNESIUM [Concomitant]
  10. MOVICOL [Concomitant]
  11. OXYCONTIN [Concomitant]
     Indication: PAIN
     Route: 048
  12. ACETAMINOPHEN [Concomitant]
     Indication: PAIN
     Route: 048
  13. PREDNISOLONE [Concomitant]
     Indication: THROMBOCYTOPENIA
     Route: 048
     Dates: start: 20070601, end: 20070901
  14. RISPERIDONE [Concomitant]
     Indication: MAJOR DEPRESSION
     Route: 048
     Dates: start: 20070501, end: 20070801
  15. SENNA [Concomitant]
  16. ZOMETA [Concomitant]
     Indication: BONE DISORDER
     Route: 042
  17. OXYNORM [Concomitant]
     Route: 048

REACTIONS (3)
  - JAUNDICE [None]
  - LIVER FUNCTION TEST ABNORMAL [None]
  - THROMBOCYTOPENIA [None]
